FAERS Safety Report 11795045 (Version 7)
Quarter: 2016Q3

REPORT INFORMATION
  Report Type: Report from Study
  Country: AU (occurrence: AU)
  Receive Date: 20151202
  Receipt Date: 20160810
  Transmission Date: 20161109
  Serious: Yes (Hospitalization, Other)
  Sender: FDA-Public Use
  Company Number: AU-JNJFOC-20151123934

PATIENT
  Age: 45 Year
  Sex: Male
  Weight: 55 kg

DRUGS (3)
  1. REMICADE [Suspect]
     Active Substance: INFLIXIMAB
     Indication: CROHN^S DISEASE
     Dosage: 2 DOSES FOR 6 WEEKLY AT 10MG/KG
     Route: 042
  2. REMICADE [Suspect]
     Active Substance: INFLIXIMAB
     Indication: CROHN^S DISEASE
     Dosage: VIAL 100 MG, TOTAL 300 MG
     Route: 042
     Dates: start: 2013
  3. 6-MP [Concomitant]
     Active Substance: MERCAPTOPURINE
     Indication: CROHN^S DISEASE
     Dosage: 1 YEAR
     Route: 048
     Dates: end: 2013

REACTIONS (8)
  - Impaired quality of life [Unknown]
  - Arthritis enteropathic [Unknown]
  - Drug ineffective [Unknown]
  - Anal cancer [Recovered/Resolved]
  - Crohn^s disease [Unknown]
  - Osteoarthritis [Unknown]
  - Anal fistula [Unknown]
  - Weight increased [Unknown]

NARRATIVE: CASE EVENT DATE: 201408
